FAERS Safety Report 9712334 (Version 1)
Quarter: 2013Q4

REPORT INFORMATION
  Report Type: Spontaneous
  Country: US (occurrence: US)
  Receive Date: 20131126
  Receipt Date: 20131126
  Transmission Date: 20140711
  Serious: No
  Sender: FDA-Public Use
  Company Number: US-BRISTOL-MYERS SQUIBB COMPANY-19162551

PATIENT
  Age: 62 Year
  Sex: Male

DRUGS (10)
  1. BYDUREON [Suspect]
     Dates: start: 20130717
  2. FLUOXETINE [Concomitant]
  3. GLYBURIDE [Concomitant]
     Dosage: 5 (UNITS NOS).
  4. LEVEMIR [Concomitant]
     Dosage: 100 UNITS BID
  5. LISINOPRIL [Concomitant]
  6. LOVAZA [Concomitant]
  7. NEXIUM [Concomitant]
     Dosage: 40 (UNITS NOS) QD
  8. NOVOLOG [Concomitant]
     Dosage: 100 45-60UNITS PER DAY
  9. QUINAPRIL [Concomitant]
     Dosage: 40 (UNITS NOS). QD
  10. TENORMIN [Concomitant]

REACTIONS (2)
  - Migraine [Unknown]
  - Faeces discoloured [Unknown]
